FAERS Safety Report 17559126 (Version 2)
Quarter: 2020Q1

REPORT INFORMATION
  Report Type: Spontaneous
  Country: US (occurrence: US)
  Receive Date: 20200319
  Receipt Date: 20200331
  Transmission Date: 20200409
  Serious: No
  Sender: FDA-Public Use
  Company Number: US-HETERO-HET2020US00349

PATIENT
  Sex: Female
  Weight: 46.26 kg

DRUGS (1)
  1. OSELTAMIVIR [Suspect]
     Active Substance: OSELTAMIVIR
     Indication: MALAISE
     Dosage: 2 DOSAGE FORM, QD (75 MG CAPSULES 2 TIMES A DAY)
     Route: 065
     Dates: start: 20200312, end: 20200312

REACTIONS (1)
  - Headache [Recovered/Resolved]

NARRATIVE: CASE EVENT DATE: 20200314
